FAERS Safety Report 20494665 (Version 2)
Quarter: 2022Q1

REPORT INFORMATION
  Report Type: Spontaneous
  Country: TW (occurrence: TW)
  Receive Date: 20220221
  Receipt Date: 20220313
  Transmission Date: 20220424
  Serious: Yes (Death, Hospitalization, Other)
  Sender: FDA-Public Use
  Company Number: TW-BRISTOL-MYERS SQUIBB COMPANY-BMS-2021-145003

PATIENT
  Age: 71 Year
  Sex: Female
  Weight: 71 kg

DRUGS (4)
  1. OPDIVO [Suspect]
     Active Substance: NIVOLUMAB
     Indication: Cholangiocarcinoma
     Dosage: 100 MILLIGRAM, Q2WK
     Route: 042
     Dates: start: 20211014
  2. OPDIVO [Suspect]
     Active Substance: NIVOLUMAB
     Dosage: UNK
     Route: 065
     Dates: start: 20211029
  3. GEMZAR [Concomitant]
     Active Substance: GEMCITABINE HYDROCHLORIDE
     Indication: Product used for unknown indication
     Dosage: 1200 MILLIGRAM, Q2WK
     Route: 042
  4. TS-1 [Concomitant]
     Active Substance: GIMERACIL\OTERACIL\TEGAFUR
     Indication: Cholangiocarcinoma
     Dosage: 2 CAPSULES TWICE DAILY FOR 5 DAYS FOLLOWED BY 2 DAYS REST
     Route: 048

REACTIONS (5)
  - Malignant neoplasm progression [Fatal]
  - Cerebrovascular accident [Unknown]
  - Seizure [Unknown]
  - Myocardial infarction [Unknown]
  - Intentional product use issue [Unknown]

NARRATIVE: CASE EVENT DATE: 20220103
